FAERS Safety Report 26208091 (Version 1)
Quarter: 2025Q4

REPORT INFORMATION
  Report Type: Spontaneous
  Country: US (occurrence: None)
  Receive Date: 20251224
  Receipt Date: 20251224
  Transmission Date: 20260118
  Serious: Yes (Hospitalization)
  Sender: FDA-CTU
  Company Number: None

PATIENT
  Sex: Female

DRUGS (2)
  1. ICATIBANT ACETATE [Suspect]
     Active Substance: ICATIBANT ACETATE
     Indication: Complement factor abnormal
     Dosage: 3 ML AS NEEDED SUBCUTANEOUS
     Route: 058
     Dates: start: 20220309
  2. RUCONEST [Suspect]
     Active Substance: CONESTAT ALFA

REACTIONS (3)
  - Haematological infection [None]
  - Swelling [None]
  - Device related infection [None]
